FAERS Safety Report 4915673-4 (Version None)
Quarter: 2006Q1

REPORT INFORMATION
  Report Type: 
  Country: None (occurrence: None)
  Receive Date: 20060217
  Receipt Date: 20060213
  Transmission Date: 20060701
  Serious: Yes (Life-Threatening, Disabling)
  Sender: FDA-Public Use
  Company Number: 2006AP00717

PATIENT
  Age: 53 Year
  Sex: Male

DRUGS (5)
  1. DIPRIVAN [Suspect]
     Indication: SEDATION
     Dosage: 15-20 ML/HR
     Route: 042
     Dates: start: 20060114, end: 20060118
  2. MIDAZOLAM [Concomitant]
  3. LEPETAN [Concomitant]
  4. NITROGLYCERIN [Concomitant]
  5. HERBESSER [Concomitant]

REACTIONS (2)
  - RENAL IMPAIRMENT [None]
  - RHABDOMYOLYSIS [None]
